FAERS Safety Report 12082870 (Version 2)
Quarter: 2016Q1

REPORT INFORMATION
  Report Type: Spontaneous
  Country: JP (occurrence: JP)
  Receive Date: 20160217
  Receipt Date: 20160301
  Transmission Date: 20160526
  Serious: Yes (Other)
  Sender: FDA-Public Use
  Company Number: PHJP2016JP003057

PATIENT

DRUGS (1)
  1. DIOVAN [Suspect]
     Active Substance: VALSARTAN
     Indication: HYPERTENSION
     Dosage: 160 MG, QD
     Route: 048

REACTIONS (1)
  - Gastric polyps [Unknown]
